FAERS Safety Report 8994735 (Version 2)
Quarter: 2013Q1

REPORT INFORMATION
  Report Type: Spontaneous
  Country: US (occurrence: None)
  Receive Date: 20121221
  Receipt Date: 20130326
  Transmission Date: 20140127
  Serious: Yes (Death)
  Sender: FDA-Public Use
  Company Number: 2012-667

PATIENT
  Age: 66 Year
  Sex: Female

DRUGS (1)
  1. FAZACLO [Suspect]
     Dosage: 25 MG, QD, ORAL
     Route: 048
     Dates: start: 20120620, end: 20121129

REACTIONS (1)
  - Death [None]
